FAERS Safety Report 25071137 (Version 1)
Quarter: 2025Q1

REPORT INFORMATION
  Report Type: Spontaneous
  Country: FR (occurrence: FR)
  Receive Date: 20250312
  Receipt Date: 20250312
  Transmission Date: 20250408
  Serious: Yes (Other)
  Sender: MYLAN
  Company Number: None

PATIENT
  Age: 44 Year
  Sex: Male

DRUGS (2)
  1. ALPRAZOLAM [Suspect]
     Active Substance: ALPRAZOLAM
     Indication: Product used for unknown indication
     Dosage: 5 DOSAGE FORM, QD (MAXIMUM 5X0.5 MG/DAY)
  2. OXAZEPAM [Suspect]
     Active Substance: OXAZEPAM
     Indication: Product used for unknown indication
     Dosage: 3 DOSAGE FORM, QD (MAXIMUM 2-3 X 50 MG/DAY)

REACTIONS (2)
  - Dependence [Unknown]
  - Drug withdrawal maintenance therapy [Unknown]

NARRATIVE: CASE EVENT DATE: 20180101
